FAERS Safety Report 17481274 (Version 11)
Quarter: 2022Q2

REPORT INFORMATION
  Report Type: Report from Study
  Country: US (occurrence: US)
  Receive Date: 20200302
  Receipt Date: 20220620
  Transmission Date: 20220720
  Serious: No
  Sender: FDA-Public Use
  Company Number: NVSC2020US058403

PATIENT
  Sex: Male

DRUGS (1)
  1. COSENTYX [Suspect]
     Active Substance: SECUKINUMAB
     Indication: Product used for unknown indication
     Dosage: UNK UNK, UNKNOWN
     Route: 065

REACTIONS (9)
  - Pain [Unknown]
  - Gait inability [Unknown]
  - Malaise [Unknown]
  - Mobility decreased [Unknown]
  - Arthralgia [Unknown]
  - Joint swelling [Unknown]
  - Illness [Unknown]
  - Arthritis [Unknown]
  - Wrong technique in product usage process [Unknown]
